FAERS Safety Report 4477444-5 (Version None)
Quarter: 2004Q4

REPORT INFORMATION
  Report Type: 
  Country: None (occurrence: None)
  Receive Date: 20041008
  Receipt Date: 20040929
  Transmission Date: 20050328
  Serious: Yes (Other)
  Sender: FDA-Public Use
  Company Number: 200410775BCA

PATIENT
  Age: 65 Year
  Sex: Female

DRUGS (2)
  1. PLASBUMIN-5 [Suspect]
     Dosage: 500 ML, INTRAVENOUS
     Route: 042
  2. ALBUMIN 5% (ALBMIN NORMAL HUMAN SERUM) [Suspect]
     Dosage: INTRAVENOUS
     Route: 042

REACTIONS (1)
  - HEPATITIS C POSITIVE [None]
